FAERS Safety Report 10363982 (Version 1)
Quarter: 2014Q3

REPORT INFORMATION
  Report Type: Spontaneous
  Country: US (occurrence: US)
  Receive Date: 20140805
  Receipt Date: 20140805
  Transmission Date: 20150326
  Serious: No
  Sender: FDA-Public Use
  Company Number: US-GILEAD-2014-0110928

PATIENT
  Age: 65 Year
  Sex: Male

DRUGS (2)
  1. OLYSIO [Concomitant]
     Active Substance: SIMEPREVIR
     Dosage: 150 MG, UNK
     Route: 065
  2. SOVALDI [Suspect]
     Active Substance: SOFOSBUVIR
     Indication: HEPATITIS C
     Dosage: 400 MG, QD
     Route: 048
     Dates: start: 20140710

REACTIONS (3)
  - Fatigue [Unknown]
  - Headache [Unknown]
  - Nausea [Unknown]

NARRATIVE: CASE EVENT DATE: 20140710
